FAERS Safety Report 15563129 (Version 1)
Quarter: 2018Q4

REPORT INFORMATION
  Report Type: Spontaneous
  Country: US (occurrence: US)
  Receive Date: 20181029
  Receipt Date: 20181029
  Transmission Date: 20190205
  Serious: Yes (Other)
  Sender: FDA-Public Use
  Company Number: US-IMPAX LABORATORIES, INC-2018-IPXL-03503

PATIENT
  Age: 6 Year
  Sex: Female

DRUGS (9)
  1. HYDROCORTISONE. [Suspect]
     Active Substance: HYDROCORTISONE
     Indication: ADRENOGENITAL SYNDROME
     Dosage: UNK
     Route: 048
  2. PREDNISONE. [Suspect]
     Active Substance: PREDNISONE
     Indication: ADRENOGENITAL SYNDROME
     Dosage: 3 MILLIGRAM, 2 /DAY
     Route: 065
  3. HYDROCORTISONE. [Suspect]
     Active Substance: HYDROCORTISONE
     Dosage: 25 MILLIGRAM, DAILY
     Route: 048
  4. HYDROCORTISONE. [Suspect]
     Active Substance: HYDROCORTISONE
     Dosage: 35 MILLIGRAM, DAILY
     Route: 048
  5. DEXAMETHASONE. [Suspect]
     Active Substance: DEXAMETHASONE
     Indication: ADRENOGENITAL SYNDROME
     Dosage: 375 MICROGRAM, DAILY
     Route: 065
  6. BICALUTAMIDE. [Suspect]
     Active Substance: BICALUTAMIDE
     Indication: ANTIANDROGEN THERAPY
     Dosage: 25 MILLIGRAM, ONCE DAILY
     Route: 065
  7. FLUDROCORTISONE ACETATE. [Suspect]
     Active Substance: FLUDROCORTISONE ACETATE
     Dosage: UNK, LONG-ACTING FORMULATIONS
     Route: 048
  8. HYDROCORTISONE. [Suspect]
     Active Substance: HYDROCORTISONE
     Dosage: 38.5 MILLIGRAM, DAILY
     Route: 048
  9. FLUDROCORTISONE ACETATE. [Suspect]
     Active Substance: FLUDROCORTISONE ACETATE
     Indication: ADRENOGENITAL SYNDROME
     Dosage: UNK
     Route: 048

REACTIONS (7)
  - Metabolic syndrome [Unknown]
  - Weight decreased [Unknown]
  - Drug effect incomplete [Unknown]
  - Hepatic steatosis [Recovering/Resolving]
  - Sleep disorder [Unknown]
  - Migraine [Unknown]
  - Obesity [Recovering/Resolving]
